FAERS Safety Report 11500548 (Version 3)
Quarter: 2016Q3

REPORT INFORMATION
  Report Type: Spontaneous
  Country: US (occurrence: US)
  Receive Date: 20150914
  Receipt Date: 20160809
  Transmission Date: 20161109
  Serious: Yes (Other)
  Sender: FDA-Public Use
  Company Number: US-PFIZER INC-2015291917

PATIENT
  Age: 43 Year
  Sex: Female

DRUGS (15)
  1. CORTISONE ACETATE. [Suspect]
     Active Substance: CORTISONE ACETATE
     Dosage: UNK
  2. NORTHERA [Suspect]
     Active Substance: DROXIDOPA
     Dosage: 500 MG, DAILY (200MG A.M, 200MG NOON, 100 MG P.M)
     Route: 048
     Dates: start: 20160203
  3. FUROSEMIDE. [Concomitant]
     Active Substance: FUROSEMIDE
     Dosage: UNK
  4. NORTHERA [Suspect]
     Active Substance: DROXIDOPA
     Indication: HYPOTENSION
     Dosage: 300 MG, 3X/DAY
     Dates: start: 201411
  5. DICYCLOMINE HCL [Concomitant]
     Active Substance: DICYCLOMINE HYDROCHLORIDE
     Dosage: UNK
  6. TRIAMCINOLONE ACETONIDE. [Concomitant]
     Active Substance: TRIAMCINOLONE ACETONIDE
     Dosage: UNK
  7. NORTHERA [Suspect]
     Active Substance: DROXIDOPA
     Dosage: 400 MG, 3X/DAY (TAKE 2 CAPSULE)
     Route: 048
  8. NORTHERA [Suspect]
     Active Substance: DROXIDOPA
     Dosage: 200 MG, 2X/DAY
     Route: 048
     Dates: start: 201505
  9. LORAZEPAM. [Concomitant]
     Active Substance: LORAZEPAM
     Dosage: UNK
  10. QVAR [Concomitant]
     Active Substance: BECLOMETHASONE DIPROPIONATE
     Dosage: UNK
  11. FLUCONAZOLE. [Concomitant]
     Active Substance: FLUCONAZOLE
     Dosage: UNK
  12. NABUMETONE. [Concomitant]
     Active Substance: NABUMETONE
     Dosage: UNK
  13. ADDERALL [Concomitant]
     Active Substance: AMPHETAMINE ASPARTATE\AMPHETAMINE SULFATE\DEXTROAMPHETAMINE SACCHARATE\DEXTROAMPHETAMINE SULFATE
     Dosage: 2.5 MG, UNK
  14. NORTHERA [Suspect]
     Active Substance: DROXIDOPA
     Dosage: 50 MG, UNK
  15. VALACYCLOVIR [Concomitant]
     Active Substance: VALACYCLOVIR HYDROCHLORIDE
     Dosage: UNK

REACTIONS (15)
  - Hypotension [Unknown]
  - Seizure [Unknown]
  - Rib fracture [Unknown]
  - Asthenia [Unknown]
  - Dizziness [Unknown]
  - Fatigue [Unknown]
  - Hypertension [Unknown]
  - Fall [Unknown]
  - Blood pressure fluctuation [Unknown]
  - Heart rate increased [Unknown]
  - Intentional product misuse [Unknown]
  - Head injury [Unknown]
  - Endometriosis [Unknown]
  - Vomiting [Unknown]
  - Headache [Unknown]

NARRATIVE: CASE EVENT DATE: 20160613
